FAERS Safety Report 10725433 (Version 2)
Quarter: 2015Q1

REPORT INFORMATION
  Report Type: Report from Study
  Country: BE (occurrence: BE)
  Receive Date: 20150121
  Receipt Date: 20150213
  Transmission Date: 20150721
  Serious: Yes (Other)
  Sender: FDA-Public Use
  Company Number: BE-GLAXOSMITHKLINE-BE2015GSK005182

PATIENT
  Age: 66 Year
  Sex: Male
  Weight: 63 kg

DRUGS (3)
  1. TRAMETINIB [Suspect]
     Active Substance: TRAMETINIB
     Indication: METASTATIC MALIGNANT MELANOMA
     Dosage: 2 UNK, UNK
     Dates: start: 20140520, end: 20140909
  2. TRAMETINIB [Suspect]
     Active Substance: TRAMETINIB
     Dosage: UNK
  3. DABRAFENIB [Suspect]
     Active Substance: DABRAFENIB
     Indication: METASTATIC MALIGNANT MELANOMA
     Dosage: 150 MG, BID
     Dates: start: 20140520, end: 20140909

REACTIONS (2)
  - Peptic ulcer haemorrhage [Recovered/Resolved]
  - Peptic ulcer haemorrhage [Unknown]

NARRATIVE: CASE EVENT DATE: 20140520
